FAERS Safety Report 4495566-X (Version None)
Quarter: 2004Q4

REPORT INFORMATION
  Report Type: 
  Country: None (occurrence: None)
  Receive Date: 20041108
  Receipt Date: 20040618
  Transmission Date: 20050328
  Serious: Yes (Death)
  Sender: FDA-Public Use
  Company Number: JP-ROCHE-371710

PATIENT
  Age: 66 Year
  Sex: Female
  Weight: 53 kg

DRUGS (9)
  1. PEGASYS [Suspect]
     Route: 058
     Dates: start: 20040416, end: 20040528
  2. MOBIC [Suspect]
     Route: 048
     Dates: start: 20040528, end: 20040615
  3. NORVASC [Concomitant]
     Route: 048
     Dates: start: 20031020
  4. URSO [Concomitant]
     Dosage: THERAPY WAS STOPPED ON 15 APRIL 2004 AND RESTARTED ON 11 JUNE 2004.
     Route: 048
     Dates: start: 20030602
  5. GLYCYRON [Concomitant]
     Route: 048
     Dates: start: 20030702, end: 20040415
  6. SELBEX [Concomitant]
     Route: 048
     Dates: start: 20040528, end: 20040615
  7. VOLTAREN [Concomitant]
     Route: 048
     Dates: start: 20040615
  8. BIOFERMIN [Concomitant]
     Route: 048
     Dates: start: 20040615
  9. CRAVIT [Concomitant]
     Route: 048
     Dates: start: 20040622

REACTIONS (27)
  - ASCITES [None]
  - ASTHENIA [None]
  - BLOOD PRESSURE DECREASED [None]
  - DEHYDRATION [None]
  - DEPRESSION [None]
  - DIFFICULTY IN WALKING [None]
  - DISSEMINATED INTRAVASCULAR COAGULATION [None]
  - ELECTROLYTE IMBALANCE [None]
  - GENERALISED OEDEMA [None]
  - HAEMORRHAGE SUBCUTANEOUS [None]
  - HEPATIC FAILURE [None]
  - MOUTH HAEMORRHAGE [None]
  - MULTI-ORGAN FAILURE [None]
  - PANCYTOPENIA [None]
  - PLATELET COUNT DECREASED [None]
  - PLEURAL EFFUSION [None]
  - PNEUMONIA [None]
  - PULMONARY HAEMORRHAGE [None]
  - PULMONARY INFARCTION [None]
  - PULMONARY OEDEMA [None]
  - RENAL HAEMORRHAGE [None]
  - RENAL IMPAIRMENT [None]
  - RESPIRATORY FAILURE [None]
  - RHEUMATOID ARTHRITIS [None]
  - STAPHYLOCOCCAL INFECTION [None]
  - URINARY OCCULT BLOOD POSITIVE [None]
  - WEIGHT INCREASED [None]
